FAERS Safety Report 7339692-6 (Version None)
Quarter: 2011Q1

REPORT INFORMATION
  Report Type: 
  Country: None (occurrence: None)
  Receive Date: 20110303
  Receipt Date: 20110303
  Transmission Date: 20110831
  Serious: Yes (Disabling, Other)
  Sender: FDA-Public Use
  Company Number: None

PATIENT
  Age: 47 Year
  Sex: Female
  Weight: 54.4316 kg

DRUGS (1)
  1. CYMBALTA [Suspect]
     Dosage: 30MG 1 X DAY
     Dates: start: 20090101

REACTIONS (4)
  - DRY EYE [None]
  - VISION BLURRED [None]
  - STRESS [None]
  - IRRITABILITY [None]
